FAERS Safety Report 8895983 (Version 4)
Quarter: 2013Q1

REPORT INFORMATION
  Report Type: Report from Study
  Country: DE (occurrence: DE)
  Receive Date: 20121108
  Receipt Date: 20130227
  Transmission Date: 20140127
  Serious: Yes (Hospitalization)
  Sender: FDA-Public Use
  Company Number: DE-ROCHE-1153498

PATIENT
  Age: 63 Year
  Sex: Female
  Weight: 63 kg

DRUGS (6)
  1. PEG-INTERFERON ALFA 2A [Suspect]
     Indication: CHRONIC HEPATITIS C
     Dosage: DATE OF LAST DOSE PRIOR TO SAE: 06/SEP/2012
     Route: 058
     Dates: start: 20120809
  2. PEG-INTERFERON ALFA 2A [Suspect]
     Dosage: DOSE REDUCED
     Route: 058
     Dates: start: 20120921
  3. RIBAVIRIN [Suspect]
     Indication: CHRONIC HEPATITIS C
     Dosage: DATE OF LAST DOSE PRIOR TO SAE: 18/SEP/2012
     Route: 048
     Dates: start: 20120809
  4. RIBAVIRIN [Suspect]
     Dosage: DOSE REDUCED
     Route: 048
  5. BOCEPREVIR [Suspect]
     Indication: CHRONIC HEPATITIS C
     Dosage: DATE OF LAST DOSE PRIOR TO SAE: 18/SEP/2012
     Route: 048
     Dates: start: 20120906
  6. BOCEPREVIR [Suspect]
     Dosage: DOSE REDUCED
     Route: 048

REACTIONS (2)
  - Chills [Recovered/Resolved]
  - Anaemia [Unknown]
